FAERS Safety Report 11922818 (Version 2)
Quarter: 2016Q2

REPORT INFORMATION
  Report Type: Report from Study
  Country: CA (occurrence: CA)
  Receive Date: 20160116
  Receipt Date: 20160407
  Transmission Date: 20160815
  Serious: Yes (Hospitalization)
  Sender: FDA-Public Use
  Company Number: CA-AMGEN-CANCT2016003156

PATIENT
  Age: 64 Year
  Sex: Male

DRUGS (12)
  1. DILANTIN [Concomitant]
     Active Substance: PHENYTOIN
     Dosage: 100 MG, BID
     Route: 048
     Dates: start: 20080302
  2. ATENOLOL. [Concomitant]
     Active Substance: ATENOLOL
     Dosage: 12.5 MG, QD
     Route: 048
     Dates: start: 20140122
  3. SYNTHROID [Concomitant]
     Active Substance: LEVOTHYROXINE SODIUM
     Dosage: 0.075 MG, QD
     Route: 048
     Dates: start: 200603
  4. CELEBREX [Concomitant]
     Active Substance: CELECOXIB
     Dosage: 200 MG, AS NECESSARY
     Route: 048
     Dates: start: 2013
  5. AMG 145 [Suspect]
     Active Substance: EVOLOCUMAB
     Indication: HYPERCHOLESTEROLAEMIA
     Dosage: 420 MG, QMO
     Route: 030
     Dates: start: 20150727
  6. PREFILLED AUTOINJECTOR/PEN [Suspect]
     Active Substance: DEVICE
     Indication: HYPERCHOLESTEROLAEMIA
     Dosage: UNK
     Route: 030
     Dates: start: 20150727
  7. TRAMADOL AND ACETAMINOPHEN [Concomitant]
     Active Substance: ACETAMINOPHEN\TRAMADOL HYDROCHLORIDE
     Dosage: 37.5/325 MG, AS NECESSARY
     Route: 048
     Dates: start: 20150424
  8. ASAPHEN [Concomitant]
     Active Substance: ASPIRIN
     Dosage: 80 MG, QD
     Route: 048
     Dates: start: 2005
  9. ATORVASTATIN [Concomitant]
     Active Substance: ATORVASTATIN
     Dosage: 40 MG, QD
     Route: 048
     Dates: start: 20131123
  10. XATRAL [Concomitant]
     Active Substance: ALFUZOSIN
     Dosage: 10 MG, QD
     Route: 048
     Dates: start: 20150918
  11. FRISIUM [Concomitant]
     Active Substance: CLOBAZAM
     Dosage: 10 MG, BID
     Route: 048
     Dates: start: 200510
  12. PANTOPRAZOLE [Concomitant]
     Active Substance: PANTOPRAZOLE SODIUM
     Dosage: 40 MG, QD
     Route: 048
     Dates: start: 2012

REACTIONS (2)
  - Sciatica [Recovering/Resolving]
  - Back pain [Recovering/Resolving]

NARRATIVE: CASE EVENT DATE: 20151020
